FAERS Safety Report 6021744-4 (Version None)
Quarter: 2008Q4

REPORT INFORMATION
  Report Type: 
  Country: None (occurrence: None)
  Receive Date: 20081229
  Receipt Date: 20081219
  Transmission Date: 20090506
  Serious: Yes (Hospitalization)
  Sender: FDA-Public Use
  Company Number: PHHY2008FI32581

PATIENT
  Age: 60 Year
  Sex: Female

DRUGS (4)
  1. RASILEZ [Suspect]
     Dosage: 150 MG DAILY
  2. ZADITEN [Concomitant]
  3. SPIRESIS [Concomitant]
  4. ATACAND [Concomitant]

REACTIONS (3)
  - HYPONATRAEMIA [None]
  - MALAISE [None]
  - VOMITING [None]
